FAERS Safety Report 4516727-7 (Version None)
Quarter: 2004Q4

REPORT INFORMATION
  Report Type: 
  Country: None (occurrence: None)
  Receive Date: 20041029
  Receipt Date: 20040728
  Transmission Date: 20050328
  Serious: No
  Sender: FDA-Public Use
  Company Number: 2004-119021-NL

PATIENT
  Age: 36 Year
  Sex: Female
  Weight: 61.2 kg

DRUGS (2)
  1. NUVARING [Suspect]
     Indication: CONTRACEPTION
     Dosage: DF DAILY VAGINAL
     Route: 067
     Dates: start: 20040719, end: 20040728
  2. NUVARING [Suspect]
     Indication: MENORRHAGIA
     Dosage: DF DAILY VAGINAL
     Route: 067
     Dates: start: 20040719, end: 20040728

REACTIONS (2)
  - PRURITUS GENERALISED [None]
  - VAGINAL MYCOSIS [None]
